FAERS Safety Report 7157773-7 (Version None)
Quarter: 2010Q4

REPORT INFORMATION
  Report Type: 
  Country: None (occurrence: None)
  Receive Date: 20101214
  Receipt Date: 20100301
  Transmission Date: 20110411
  Serious: No
  Sender: FDA-Public Use
  Company Number: US-ASTRAZENECA-2010SE05663

PATIENT
  Age: 29597 Day
  Sex: Female

DRUGS (14)
  1. CRESTOR [Suspect]
     Indication: BLOOD CHOLESTEROL INCREASED
     Route: 048
     Dates: start: 20100207
  2. NORVASC [Concomitant]
     Indication: HYPERTENSION
  3. ASPIRIN [Concomitant]
  4. CARVEDILOL [Concomitant]
  5. CO-Q-10 [Concomitant]
  6. MOBIC [Concomitant]
     Indication: ARTHRITIS
  7. PEPSID [Concomitant]
  8. SPRINOLACTONE [Concomitant]
  9. SYNTHROID [Concomitant]
  10. PRINIVIL [Concomitant]
  11. FISH OIL [Concomitant]
  12. MORPHINE [Concomitant]
  13. LISINOPRIL [Concomitant]
  14. VITAMINS [Concomitant]

REACTIONS (2)
  - BLOOD PRESSURE INCREASED [None]
  - HYPOAESTHESIA [None]
